FAERS Safety Report 6650022-5 (Version None)
Quarter: 2010Q1

REPORT INFORMATION
  Report Type: 
  Country: None (occurrence: None)
  Receive Date: 20100325
  Receipt Date: 20100316
  Transmission Date: 20100710
  Serious: Yes (Other)
  Sender: FDA-Public Use
  Company Number: US-WYE-H14166510

PATIENT
  Sex: Female

DRUGS (5)
  1. EFFEXOR XR [Suspect]
     Indication: DEPRESSION
     Dosage: 75 MG DAILY, THEN PATIENT FORGOT TO TAKE MEDICATION FOR A FEW DAYS IN 1998; THEN RESUMED SINCE 1998
     Route: 048
  2. DIOVAN [Concomitant]
     Indication: HYPERTENSION
     Dosage: UNKNOWN
  3. RANITIDINE [Concomitant]
     Dosage: UNKNOWN
  4. LEVOXYL [Concomitant]
     Indication: THYROID DISORDER
     Dosage: UNKNOWN
  5. SIMVASTATIN [Concomitant]
     Indication: BLOOD CHOLESTEROL INCREASED
     Dosage: UNKNOWN

REACTIONS (5)
  - ANXIETY [None]
  - DRUG WITHDRAWAL SYNDROME [None]
  - DYSKINESIA [None]
  - HYPERHIDROSIS [None]
  - VOMITING [None]
